FAERS Safety Report 10334401 (Version 1)
Quarter: 2014Q3

REPORT INFORMATION
  Report Type: Spontaneous
  Country: US (occurrence: US)
  Receive Date: 20140723
  Receipt Date: 20140723
  Transmission Date: 20150326
  Serious: No
  Sender: FDA-Public Use
  Company Number: US-UNITED THERAPEUTICS-UTC-046093

PATIENT
  Sex: Male
  Weight: 77.56 kg

DRUGS (1)
  1. REMODULIN [Suspect]
     Active Substance: TREPROSTINIL
     Dosage: 0.033 UG/KG/MIN
     Route: 058
     Dates: start: 20090917

REACTIONS (3)
  - Nasopharyngitis [Unknown]
  - Secretion discharge [Unknown]
  - Nasal congestion [Unknown]
